FAERS Safety Report 10977869 (Version 3)
Quarter: 2015Q2

REPORT INFORMATION
  Report Type: Spontaneous
  Country: JP (occurrence: JP)
  Receive Date: 20150402
  Receipt Date: 20150619
  Transmission Date: 20150821
  Serious: Yes (Life-Threatening, Hospitalization)
  Sender: FDA-Public Use
  Company Number: JP-JNJFOC-20150322175

PATIENT
  Age: 43 Year
  Sex: Female

DRUGS (13)
  1. DEPAKENE [Concomitant]
     Active Substance: VALPROIC ACID
     Indication: IMPULSE-CONTROL DISORDER
     Dosage: 2 DOSES PER 1 DAY
     Route: 048
     Dates: start: 20100414, end: 20150314
  2. DEPAKENE [Concomitant]
     Active Substance: VALPROIC ACID
     Indication: BIPOLAR DISORDER
     Dosage: 2 DOSES PER 1 DAY
     Route: 048
     Dates: start: 20100414, end: 20150314
  3. SEROQUEL [Concomitant]
     Active Substance: QUETIAPINE FUMARATE
     Indication: BIPOLAR DISORDER
     Dosage: 1DOSE PER 1 DAY.
     Route: 048
     Dates: start: 20141128, end: 20150314
  4. MEILAX [Concomitant]
     Active Substance: ETHYL LOFLAZEPATE
     Indication: INSOMNIA
     Dosage: 2 DOSES PER 1 DAY
     Route: 048
     Dates: start: 20120501, end: 20150314
  5. MEILAX [Concomitant]
     Active Substance: ETHYL LOFLAZEPATE
     Indication: ANXIETY
     Dosage: 2 DOSES PER 1 DAY
     Route: 048
     Dates: start: 20120501, end: 20150314
  6. GASTER [Concomitant]
     Active Substance: FAMOTIDINE
     Indication: ABDOMINAL PAIN UPPER
     Dosage: 2 DOSES PER 1 DAY
     Route: 048
     Dates: start: 20130201, end: 20150314
  7. PAXIL CR [Suspect]
     Active Substance: PAROXETINE HYDROCHLORIDE
     Indication: DEPRESSION
     Dosage: 1 DOSE PER 1 DAY
     Route: 048
     Dates: start: 20120709, end: 20150314
  8. SEROQUEL [Concomitant]
     Active Substance: QUETIAPINE FUMARATE
     Indication: INSOMNIA
     Dosage: 1DOSE PER 1 DAY.
     Route: 048
     Dates: start: 20141128, end: 20150314
  9. LEXOTAN [Concomitant]
     Active Substance: BROMAZEPAM
     Indication: INSOMNIA
     Dosage: 3 DOSES PER 1 DAY
     Route: 048
     Dates: start: 20100414, end: 20150314
  10. LOXONIN [Concomitant]
     Active Substance: LOXOPROFEN SODIUM
     Indication: HEADACHE
     Dosage: 2 DOSES PER 1 DAY
     Route: 048
     Dates: start: 20120806, end: 20150314
  11. LEXOTAN [Concomitant]
     Active Substance: BROMAZEPAM
     Indication: ANXIETY
     Dosage: 3 DOSES PER 1 DAY
     Route: 048
     Dates: start: 20100414, end: 20150314
  12. TRAMCET [Suspect]
     Active Substance: ACETAMINOPHEN\TRAMADOL
     Indication: PAIN
     Dosage: 1 DOSE(S) 3 PER DAY
     Route: 048
     Dates: start: 20140820, end: 20150314
  13. GASTER [Concomitant]
     Active Substance: FAMOTIDINE
     Indication: ABDOMINAL PAIN
     Dosage: 2 DOSES PER 1 DAY
     Route: 048
     Dates: start: 20130201, end: 20150314

REACTIONS (7)
  - Suicide attempt [Unknown]
  - Stab wound [Unknown]
  - Hepatic failure [Unknown]
  - Coma [Recovered/Resolved]
  - Toxicity to various agents [Recovered/Resolved]
  - Arrhythmia [Unknown]
  - Overdose [Recovered/Resolved]

NARRATIVE: CASE EVENT DATE: 20150314
